FAERS Safety Report 22075775 (Version 1)
Quarter: 2023Q1

REPORT INFORMATION
  Report Type: Spontaneous
  Country: CN (occurrence: None)
  Receive Date: 20230308
  Receipt Date: 20230308
  Transmission Date: 20230418
  Serious: Yes (Other)
  Sender: FDA-Public Use
  Company Number: CN-Eisai Medical Research-EC-2023-135528

PATIENT
  Age: 60 Year
  Sex: Female

DRUGS (5)
  1. HALAVEN [Suspect]
     Active Substance: ERIBULIN MESYLATE
     Indication: Breast cancer
     Route: 042
     Dates: start: 20230207
  2. CAMRELIZUMAB [Suspect]
     Active Substance: CAMRELIZUMAB
     Indication: Breast cancer
     Dosage: FREQUENCY UNKNOWN
     Route: 041
     Dates: start: 20230207, end: 20230207
  3. CAMRELIZUMAB [Suspect]
     Active Substance: CAMRELIZUMAB
     Indication: Ovarian cancer
  4. APATINIB [Suspect]
     Active Substance: APATINIB
     Indication: Breast cancer
     Dosage: FREQUENCY UNKNOWN
     Route: 048
     Dates: start: 20230207, end: 20230227
  5. APATINIB [Suspect]
     Active Substance: APATINIB
     Indication: Ovarian cancer

REACTIONS (1)
  - Myelosuppression [Recovered/Resolved]

NARRATIVE: CASE EVENT DATE: 20230223
